FAERS Safety Report 9460431 (Version 1)
Quarter: 2013Q3

REPORT INFORMATION
  Report Type: Spontaneous
  Country: CA (occurrence: CA)
  Receive Date: 20130815
  Receipt Date: 20130815
  Transmission Date: 20140515
  Serious: Yes (Hospitalization, Other)
  Sender: FDA-Public Use
  Company Number: CA-BAXTER-2013BAX025926

PATIENT
  Age: 79 Year
  Sex: Male

DRUGS (2)
  1. DIANEAL PD4 SOLUTION WITH 1.5% DEXTROSE AND 2.5 MEQ/L CALCIUM [Suspect]
     Indication: NEPHROPATHY
     Route: 033
     Dates: start: 20101224, end: 201308
  2. EXTRANEAL [Suspect]
     Indication: NEPHROPATHY
     Route: 033
     Dates: start: 20101224, end: 201308

REACTIONS (5)
  - Loss of consciousness [Recovered/Resolved]
  - Haematochezia [Recovering/Resolving]
  - Renal failure [Not Recovered/Not Resolved]
  - Decreased appetite [Not Recovered/Not Resolved]
  - Asthenia [Not Recovered/Not Resolved]
